FAERS Safety Report 12221471 (Version 2)
Quarter: 2016Q2

REPORT INFORMATION
  Report Type: Spontaneous
  Country: US (occurrence: US)
  Receive Date: 20160330
  Receipt Date: 20160526
  Transmission Date: 20160815
  Serious: No
  Sender: FDA-Public Use
  Company Number: US-ASTRAZENECA-2016SE19397

PATIENT
  Age: 74 Year
  Sex: Male
  Weight: 89.8 kg

DRUGS (4)
  1. SYMBICORT [Suspect]
     Active Substance: BUDESONIDE\FORMOTEROL FUMARATE DIHYDRATE
     Indication: CHRONIC OBSTRUCTIVE PULMONARY DISEASE
     Dosage: 80 4.5, 2 PUFFS TWICE A DAY
     Route: 055
     Dates: start: 20160204
  2. SIMBASTATIN [Concomitant]
     Indication: BLOOD CHOLESTEROL ABNORMAL
     Route: 048
  3. LOSARTAN. [Concomitant]
     Active Substance: LOSARTAN
     Indication: BLOOD PRESSURE ABNORMAL
     Route: 048
  4. TRIAMERENE [Concomitant]
     Indication: BLOOD PRESSURE ABNORMAL
     Route: 048

REACTIONS (4)
  - Cough [Recovering/Resolving]
  - Device malfunction [Unknown]
  - Nasal dryness [Recovering/Resolving]
  - Weight decreased [Unknown]
